FAERS Safety Report 15203706 (Version 2)
Quarter: 2018Q4

REPORT INFORMATION
  Report Type: Report from Study
  Country: IT (occurrence: IT)
  Receive Date: 20180726
  Receipt Date: 20181010
  Transmission Date: 20190204
  Serious: Yes (Hospitalization)
  Sender: FDA-Public Use
  Company Number: IT-TEVA-2018-IT-931116

PATIENT
  Age: 47 Year
  Sex: Male

DRUGS (3)
  1. VINCRISTINA TEVA ITALIA 1 MG/ML SOLUZIONE INIETTABILE [Suspect]
     Active Substance: VINCRISTINE SULFATE
     Indication: DIFFUSE LARGE B-CELL LYMPHOMA
     Dates: start: 20180207
  2. ENDOXAN BAXTER 1 G POLVERE PER SOLUZIONE INIETTABILE [Suspect]
     Active Substance: CYCLOPHOSPHAMIDE
     Indication: DIFFUSE LARGE B-CELL LYMPHOMA
     Route: 042
     Dates: start: 20180207
  3. ADRIBLASTINA 50 MG/25 ML SOLUZIONE INIETTABILE PER USO ENDOVENOSO [Suspect]
     Active Substance: DOXORUBICIN HYDROCHLORIDE
     Indication: DIFFUSE LARGE B-CELL LYMPHOMA
     Route: 042
     Dates: start: 20180207

REACTIONS (3)
  - Hypotension [Recovered/Resolved]
  - Respiratory failure [Recovered/Resolved]
  - Pyrexia [Recovered/Resolved]

NARRATIVE: CASE EVENT DATE: 20180207
